FAERS Safety Report 5999628-7 (Version None)
Quarter: 2008Q4

REPORT INFORMATION
  Report Type: 
  Country: None (occurrence: None)
  Receive Date: 20081211
  Receipt Date: 20081126
  Transmission Date: 20090506
  Serious: Yes (Death)
  Sender: FDA-Public Use
  Company Number: 2008S1021219

PATIENT
  Age: 76 Year
  Sex: Male

DRUGS (20)
  1. TERBINAFINE (TERBINAFINE) (250 MG) [Suspect]
     Indication: FUNGAL INFECTION
     Dosage: 250 MG; ORAL
     Route: 048
     Dates: start: 20080101, end: 20081030
  2. AMOXICILLIN [Concomitant]
  3. PENICILLIN G [Concomitant]
  4. BETNOVATE [Concomitant]
  5. CEFOTAXIME [Concomitant]
  6. CEFUROXIME [Concomitant]
  7. CLARITHROMYCIN [Concomitant]
  8. CLEXANE [Concomitant]
  9. CODEINE PHOSPHATE [Concomitant]
  10. CYANOCOBALAMIN [Concomitant]
  11. FLOXACILLIN SODIUM [Concomitant]
  12. FLUOXETINE [Concomitant]
  13. GLYCOPYRROLATE [Concomitant]
  14. HYDROCORTISONE [Concomitant]
  15. METOCLOPRAMIDE [Concomitant]
  16. MORPHINE [Concomitant]
  17. ACETAMINOPHEN [Concomitant]
  18. RANITIDINE [Concomitant]
  19. TERBINAFINE HCL [Concomitant]
  20. TRAMADOL [Concomitant]

REACTIONS (2)
  - RASH [None]
  - TOXIC EPIDERMAL NECROLYSIS [None]
